FAERS Safety Report 19855585 (Version 4)
Quarter: 2021Q4

REPORT INFORMATION
  Report Type: Spontaneous
  Country: US (occurrence: US)
  Receive Date: 20210920
  Receipt Date: 20211007
  Transmission Date: 20220303
  Serious: No
  Sender: FDA-Public Use
  Company Number: US-AMGEN-USASP2021143421

PATIENT
  Age: 28 Year
  Sex: Female

DRUGS (4)
  1. OTEZLA [Suspect]
     Active Substance: APREMILAST
     Indication: Psoriatic arthropathy
     Dosage: UNK UNK, AS NECESSARY(STARTER PACK)
     Route: 048
     Dates: start: 20210804
  2. AUROVELA FE 1/20 [Concomitant]
     Active Substance: ETHINYL ESTRADIOL\NORETHINDRONE ACETATE
     Dosage: UNK
  3. DROSPIRENONE\ETHINYL ESTRADIOL [Concomitant]
     Active Substance: DROSPIRENONE\ETHINYL ESTRADIOL
     Dosage: UNK
  4. SERTRALINE [Concomitant]
     Active Substance: SERTRALINE HYDROCHLORIDE
     Dosage: UNK

REACTIONS (3)
  - Fatigue [Recovered/Resolved]
  - Headache [Recovered/Resolved]
  - Nausea [Recovered/Resolved]

NARRATIVE: CASE EVENT DATE: 20210901
